FAERS Safety Report 8968388 (Version 1)
Quarter: 2012Q4

REPORT INFORMATION
  Report Type: 
  Country: US (occurrence: US)
  Receive Date: 20121218
  Receipt Date: 20121218
  Transmission Date: 20130627
  Serious: No
  Sender: FDA-Public Use
  Company Number: US-BRISTOL-MYERS SQUIBB COMPANY-16770273

PATIENT
  Age: 57 Year
  Sex: Female
  Weight: 79.36 kg

DRUGS (3)
  1. ABILIFY [Suspect]
     Indication: BIPOLAR DISORDER
     Dosage: lowest dose,1 week in Apr2012
     Dates: start: 201204
  2. EFFEXOR XR [Concomitant]
  3. TOPROL [Concomitant]

REACTIONS (3)
  - Fatigue [Recovered/Resolved]
  - Memory impairment [Recovered/Resolved]
  - Confusional state [Recovered/Resolved]
